FAERS Safety Report 5158956-8 (Version None)
Quarter: 2006Q4

REPORT INFORMATION
  Report Type: 
  Country: None (occurrence: None)
  Receive Date: 20061117
  Receipt Date: 20061107
  Transmission Date: 20070319
  Serious: Yes (Hospitalization)
  Sender: FDA-Public Use
  Company Number: 2006132379

PATIENT
  Age: 70 Year
  Sex: Female
  Weight: 60 kg

DRUGS (1)
  1. SUTENT [Suspect]
     Indication: METASTATIC RENAL CELL CARCINOMA
     Dosage: 50 MG (50 MG 1 IN 1 D), ORAL
     Route: 048
     Dates: start: 20060711

REACTIONS (4)
  - BLOOD ALBUMIN DECREASED [None]
  - LEUKOPENIA [None]
  - NEUTROPENIA [None]
  - TOOTH INFECTION [None]
